FAERS Safety Report 12221284 (Version 4)
Quarter: 2016Q3

REPORT INFORMATION
  Report Type: Spontaneous
  Country: JP (occurrence: JP)
  Receive Date: 20160330
  Receipt Date: 20160707
  Transmission Date: 20161109
  Serious: Yes (Other)
  Sender: FDA-Public Use
  Company Number: JP-GLAXOSMITHKLINE-JP2016JPN041537

PATIENT
  Age: 65 Year
  Sex: Female
  Weight: 38 kg

DRUGS (11)
  1. LAMICTAL [Suspect]
     Active Substance: LAMOTRIGINE
     Dosage: 50 MG, BID
     Route: 048
     Dates: start: 20151226, end: 20151227
  2. LAMICTAL [Suspect]
     Active Substance: LAMOTRIGINE
     Dosage: 25 MG, BID
     Route: 048
     Dates: start: 20160225, end: 20160309
  3. ABILIFY [Concomitant]
     Active Substance: ARIPIPRAZOLE
     Dosage: 12 MG, 1D
     Dates: start: 20160211
  4. LAMICTAL [Suspect]
     Active Substance: LAMOTRIGINE
     Indication: BIPOLAR DISORDER
     Dosage: 25 MG, QD
     Route: 048
     Dates: start: 20151128, end: 20151211
  5. LAMICTAL [Suspect]
     Active Substance: LAMOTRIGINE
     Dosage: 50 MG, BID
     Route: 048
     Dates: start: 20160310, end: 20160324
  6. ABILIFY [Concomitant]
     Active Substance: ARIPIPRAZOLE
     Indication: BIPOLAR DISORDER
     Dosage: 3 MG, 1D
  7. LAMICTAL [Suspect]
     Active Substance: LAMOTRIGINE
     Dosage: 25 MG, BID
     Route: 048
     Dates: start: 20151212, end: 20151225
  8. LAMICTAL [Suspect]
     Active Substance: LAMOTRIGINE
     Dosage: 25 MG, QD
     Route: 048
     Dates: start: 20160211, end: 20160224
  9. OLANZAPINE. [Concomitant]
     Active Substance: OLANZAPINE
     Dosage: UNK
     Dates: start: 20160125, end: 20160210
  10. ABILIFY [Concomitant]
     Active Substance: ARIPIPRAZOLE
     Dosage: UNK, BID
     Dates: start: 20160317
  11. LAMICTAL [Suspect]
     Active Substance: LAMOTRIGINE
     Dosage: 25 MG, BID
     Route: 048
     Dates: start: 20151228, end: 20160124

REACTIONS (10)
  - Petechiae [Unknown]
  - Blood creatine phosphokinase increased [Unknown]
  - Restlessness [Unknown]
  - Ligament disorder [Recovered/Resolved]
  - Agitation [Unknown]
  - Internal haemorrhage [Recovered/Resolved]
  - Pain in extremity [Recovering/Resolving]
  - Hallucination, auditory [Unknown]
  - Intermittent claudication [Unknown]
  - Ligament sprain [Unknown]

NARRATIVE: CASE EVENT DATE: 20151227
